FAERS Safety Report 6484967-6 (Version None)
Quarter: 2009Q4

REPORT INFORMATION
  Report Type: 
  Country: None (occurrence: None)
  Receive Date: 20091203
  Receipt Date: 20091124
  Transmission Date: 20100525
  Serious: Yes (Other)
  Sender: FDA-Public Use
  Company Number: 2009SP037063

PATIENT
  Sex: Male

DRUGS (3)
  1. PREGNYL [Suspect]
     Indication: HYPOGONADISM
     Dosage: 1500 IU
  2. FLUOXETINE HCL [Concomitant]
  3. CITALOPRAM HYDROBROMIDE [Concomitant]

REACTIONS (15)
  - AGGRESSION [None]
  - BREAST DISORDER MALE [None]
  - DYSPHONIA [None]
  - EYE DISORDER [None]
  - HAIR GROWTH ABNORMAL [None]
  - INSOMNIA [None]
  - LARYNGEAL DISORDER [None]
  - LIBIDO INCREASED [None]
  - OVERDOSE [None]
  - PALPITATIONS [None]
  - PHARYNGEAL DISORDER [None]
  - RASH [None]
  - RASH ERYTHEMATOUS [None]
  - TESTICULAR OEDEMA [None]
  - UNEVALUABLE EVENT [None]
